FAERS Safety Report 4733693-X (Version None)
Quarter: 2005Q3

REPORT INFORMATION
  Report Type: 
  Country: None (occurrence: None)
  Receive Date: 20050729
  Receipt Date: 20050609
  Transmission Date: 20060218
  Serious: No
  Sender: FDA-Public Use
  Company Number: COT_0090_2005

PATIENT
  Age: 71 Year
  Sex: Female
  Weight: 48.0813 kg

DRUGS (12)
  1. VENTAVIS [Suspect]
     Indication: PULMONARY HYPERTENSION
     Dosage: DF Q3HR IH
     Route: 055
     Dates: start: 20050607
  2. COUMADIN [Concomitant]
  3. ALLEGRA [Concomitant]
  4. ALDACTONE [Concomitant]
  5. LEVOXYL [Concomitant]
  6. XANAX [Concomitant]
  7. VIAGRA [Concomitant]
  8. LASIX [Concomitant]
  9. PREVACID [Concomitant]
  10. PACERONE [Concomitant]
  11. IRON [Concomitant]
  12. MULTI-VITAMINS [Concomitant]

REACTIONS (2)
  - ASTHENIA [None]
  - TREMOR [None]
